FAERS Safety Report 8425048-1 (Version None)
Quarter: 2012Q2

REPORT INFORMATION
  Report Type: 
  Country: None (occurrence: None)
  Receive Date: 20120605
  Receipt Date: 20120605
  Transmission Date: 20120825
  Serious: Yes (Hospitalization)
  Sender: FDA-Public Use
  Company Number: None

PATIENT
  Sex: Female
  Weight: 70.76 kg

DRUGS (6)
  1. ISOSORBIDE DINITRATE [Concomitant]
  2. CLOPIDOGREL [Concomitant]
  3. MICARDIS [Concomitant]
  4. ERBITUX [Suspect]
     Dosage: 453 MG
  5. FEXOFENADINE [Concomitant]
  6. METFORMIN HCL [Concomitant]

REACTIONS (3)
  - CELLULITIS [None]
  - OEDEMA PERIPHERAL [None]
  - ERYTHEMA [None]
